FAERS Safety Report 6427816-4 (Version None)
Quarter: 2009Q4

REPORT INFORMATION
  Report Type: 
  Country: None (occurrence: None)
  Receive Date: 20091104
  Receipt Date: 20091104
  Transmission Date: 20100525
  Serious: Yes (Disabling)
  Sender: FDA-Public Use
  Company Number: None

PATIENT
  Age: 43 Year
  Sex: Female
  Weight: 58.9676 kg

DRUGS (1)
  1. TYSABRI [Suspect]
     Indication: MULTIPLE SCLEROSIS
     Dosage: INFUSION TREATMENT MONTHLY
     Dates: start: 20080101, end: 20080801

REACTIONS (13)
  - ANXIETY [None]
  - BLADDER DISORDER [None]
  - DECREASED APPETITE [None]
  - DEPRESSION [None]
  - DISTURBANCE IN ATTENTION [None]
  - FATIGUE [None]
  - GASTRIC DISORDER [None]
  - HYPOACUSIS [None]
  - IMMOBILE [None]
  - LOSS OF CONSCIOUSNESS [None]
  - MUSCLE SPASTICITY [None]
  - TINNITUS [None]
  - VISUAL IMPAIRMENT [None]
